FAERS Safety Report 10075474 (Version 1)
Quarter: 2014Q2

REPORT INFORMATION
  Report Type: Spontaneous
  Country: US (occurrence: None)
  Receive Date: 20140411
  Receipt Date: 20140411
  Transmission Date: 20141212
  Serious: Yes (Other)
  Sender: FDA-Public Use
  Company Number: None

PATIENT
  Age: 57 Year
  Sex: Female
  Weight: 63.5 kg

DRUGS (1)
  1. FENTANYL TRANSDERMAL SYSTEM [Suspect]
     Indication: PAIN MANAGEMENT
     Dosage: 1 PATCH?EVERY 72 HOURS?TRANSDERMAL
     Route: 062
     Dates: start: 20140308, end: 20140409

REACTIONS (2)
  - Product adhesion issue [None]
  - Inadequate analgesia [None]
